FAERS Safety Report 8438063-9 (Version None)
Quarter: 2012Q2

REPORT INFORMATION
  Report Type: 
  Country: None (occurrence: None)
  Receive Date: 20120614
  Receipt Date: 20120614
  Transmission Date: 20120825
  Serious: Yes (Other)
  Sender: FDA-Public Use
  Company Number: US-JNJFOC-20120603605

PATIENT
  Age: 51 Year
  Sex: Male
  Weight: 119.3 kg

DRUGS (1)
  1. INVEGA SUSTENNA [Suspect]
     Indication: PRODUCT USED FOR UNKNOWN INDICATION
     Route: 030
     Dates: start: 20120101

REACTIONS (3)
  - DRUG DOSE OMISSION [None]
  - WEIGHT INCREASED [None]
  - CARDIAC FAILURE CONGESTIVE [None]
